FAERS Safety Report 4445591-X (Version None)
Quarter: 2004Q3

REPORT INFORMATION
  Report Type: 
  Country: None (occurrence: None)
  Receive Date: 20040903
  Receipt Date: 20040824
  Transmission Date: 20050211
  Serious: Yes (Death)
  Sender: FDA-Public Use
  Company Number: 2004229762JP

PATIENT
  Age: 67 Year
  Sex: Male
  Weight: 58 kg

DRUGS (5)
  1. CAMPTOSAR [Suspect]
     Indication: COLORECTAL CANCER
     Dosage: 140 MG, QD, IV DRIP
     Route: 041
     Dates: start: 20040720, end: 20040720
  2. CALCIUM LEVOFOLINATE (CALCIUM LEVOFOLINATE) [Concomitant]
  3. FLUOROURACIL [Concomitant]
  4. MEYLON [Concomitant]
  5. URSO [Concomitant]

REACTIONS (10)
  - BONE MARROW DEPRESSION [None]
  - CARDIAC FAILURE [None]
  - DIARRHOEA [None]
  - DISSEMINATED INTRAVASCULAR COAGULATION [None]
  - HEPATIC FAILURE [None]
  - MULTI-ORGAN FAILURE [None]
  - RENAL FAILURE [None]
  - RESPIRATORY FAILURE [None]
  - SEPSIS [None]
  - THROMBOCYTOPENIA [None]
